FAERS Safety Report 14532414 (Version 1)
Quarter: 2018Q1

REPORT INFORMATION
  Report Type: Other
  Country: DE (occurrence: DE)
  Receive Date: 20180214
  Receipt Date: 20180214
  Transmission Date: 20180509
  Serious: Yes (Other)
  Sender: FDA-Public Use
  Company Number: DE-TAKEDA-2018MPI001608

PATIENT
  Sex: Female

DRUGS (4)
  1. BORTEZOMIB [Suspect]
     Active Substance: BORTEZOMIB
     Indication: PRODUCT USED FOR UNKNOWN INDICATION
     Dosage: UNK
     Route: 065
     Dates: end: 201611
  2. DEXAMETHASONE. [Suspect]
     Active Substance: DEXAMETHASONE
     Indication: PRODUCT USED FOR UNKNOWN INDICATION
     Dosage: UNK
     Route: 065
     Dates: end: 201611
  3. FARYDAK [Suspect]
     Active Substance: PANOBINOSTAT
     Indication: PRODUCT USED FOR UNKNOWN INDICATION
     Dosage: UNK
     Route: 065
  4. FARYDAK [Suspect]
     Active Substance: PANOBINOSTAT
     Dosage: 10 MG, UNK
     Route: 065
     Dates: end: 201611

REACTIONS (8)
  - Nasal disorder [Recovered/Resolved]
  - Abdominal pain upper [Recovered/Resolved]
  - Diarrhoea [Recovered/Resolved]
  - Pneumonia [Recovered/Resolved]
  - Sphincter of Oddi dysfunction [Not Recovered/Not Resolved]
  - Rhinorrhoea [Recovered/Resolved]
  - Gastrointestinal disorder [Not Recovered/Not Resolved]
  - Infrequent bowel movements [Not Recovered/Not Resolved]
